FAERS Safety Report 7440423-X (Version None)
Quarter: 2011Q2

REPORT INFORMATION
  Report Type: 
  Country: None (occurrence: None)
  Receive Date: 20110427
  Receipt Date: 20110421
  Transmission Date: 20111010
  Serious: Yes (Death, Hospitalization)
  Sender: FDA-Public Use
  Company Number: DE-BRISTOL-MYERS SQUIBB COMPANY-15674385

PATIENT
  Age: 66 Year
  Sex: Male
  Weight: 70 kg

DRUGS (4)
  1. SODIUM CHLORIDE [Concomitant]
     Dosage: NACL 0.9%
     Route: 042
     Dates: start: 20110412
  2. MEROPENEM [Concomitant]
     Route: 042
     Dates: start: 20110420
  3. IPILIMUMAB [Suspect]
     Indication: MALIGNANT MELANOMA
     Dosage: 3MG/KG IS THE STRENGTH.
     Dates: start: 20110405
  4. RINGERS SOLUTION [Concomitant]
     Route: 042
     Dates: start: 20110412

REACTIONS (2)
  - COLITIS [None]
  - PNEUMONIA [None]
